FAERS Safety Report 10570282 (Version 3)
Quarter: 2015Q3

REPORT INFORMATION
  Report Type: Spontaneous
  Country: CA (occurrence: None)
  Receive Date: 20141105
  Receipt Date: 20150723
  Transmission Date: 20151125
  Serious: Yes (Other)
  Sender: FDA-Public Use
  Company Number: AMAG201400404

PATIENT
  Age: 52 Year
  Sex: Female
  Weight: 61.3 kg

DRUGS (1)
  1. FERAHEME [Suspect]
     Active Substance: FERUMOXYTOL NON-STOICHIOMETRIC MAGNETITE
     Dosage: INFUSION RATE OF 60 ML/15MIN, SINGLE, INFUSION
     Dates: start: 20141028, end: 20141028

REACTIONS (7)
  - Hypersensitivity [None]
  - Blood pressure increased [None]
  - Hyperventilation [None]
  - Respiratory distress [None]
  - Infusion related reaction [None]
  - Hyperhidrosis [None]
  - Anxiety [None]

NARRATIVE: CASE EVENT DATE: 20141028
